FAERS Safety Report 15265867 (Version 2)
Quarter: 2018Q3

REPORT INFORMATION
  Report Type: Report from Study
  Country: US (occurrence: US)
  Receive Date: 20180810
  Receipt Date: 20180911
  Transmission Date: 20181010
  Serious: No
  Sender: FDA-Public Use
  Company Number: PHEH2018US032092

PATIENT
  Age: 82 Year
  Sex: Male
  Weight: 74 kg

DRUGS (3)
  1. GLEEVEC [Suspect]
     Active Substance: IMATINIB MESYLATE
     Dosage: 400 MG, QD
     Route: 048
     Dates: start: 20180418
  2. GLEEVEC [Suspect]
     Active Substance: IMATINIB MESYLATE
     Dosage: 400 MG, QD
     Route: 048
     Dates: start: 20180402
  3. GLEEVEC [Suspect]
     Active Substance: IMATINIB MESYLATE
     Indication: GASTROINTESTINAL STROMAL TUMOUR
     Dosage: 400 MG, QD
     Route: 048
     Dates: start: 20180312

REACTIONS (25)
  - Spinal osteoarthritis [Unknown]
  - Hernia [Unknown]
  - Blood albumin decreased [Unknown]
  - Atelectasis [Unknown]
  - Protein total decreased [Unknown]
  - Fluid retention [Unknown]
  - Pruritus [Unknown]
  - Ear pain [Recovering/Resolving]
  - Blood chloride increased [Unknown]
  - Blood calcium decreased [Unknown]
  - Flushing [Unknown]
  - Hepatic steatosis [Unknown]
  - Pleural effusion [Unknown]
  - Rash [Recovering/Resolving]
  - Chronic obstructive pulmonary disease [Unknown]
  - Mean cell volume increased [Unknown]
  - Red blood cell count decreased [Unknown]
  - Oedema genital [Unknown]
  - Eyelid oedema [Unknown]
  - Erythema [Unknown]
  - Splenic lesion [Unknown]
  - Emphysema [Unknown]
  - Peripheral swelling [Recovered/Resolved with Sequelae]
  - Eye oedema [Recovering/Resolving]
  - Periorbital oedema [Unknown]

NARRATIVE: CASE EVENT DATE: 20180425
